FAERS Safety Report 18924996 (Version 3)
Quarter: 2021Q1

REPORT INFORMATION
  Report Type: Spontaneous
  Country: FR (occurrence: FR)
  Receive Date: 20210222
  Receipt Date: 20210331
  Transmission Date: 20210420
  Serious: Yes (Other)
  Sender: FDA-Public Use
  Company Number: FR-GRUNENTHAL-2021-101145

PATIENT
  Age: 55 Year
  Sex: Female

DRUGS (6)
  1. QUTENZA [Suspect]
     Active Substance: CAPSAICIN
     Indication: NEURALGIA
  2. VERSATIS 700 MG, EMPLATRE MEDICAMENTEUX [Concomitant]
     Dosage: UNK
     Route: 061
  3. PARACETAMOL [Concomitant]
     Active Substance: ACETAMINOPHEN
     Indication: PRODUCT USED FOR UNKNOWN INDICATION
     Dosage: UNK
     Route: 065
  4. QUTENZA [Suspect]
     Active Substance: CAPSAICIN
     Indication: NEURALGIA
     Dosage: 1 DOSAGE FORM, QUARTERLY
     Route: 003
     Dates: start: 20200812, end: 20210210
  5. PARACETAMOL [Concomitant]
     Active Substance: ACETAMINOPHEN
     Dosage: UNK
     Route: 065
  6. VERSATIS 700 MG, EMPLATRE MEDICAMENTEUX [Concomitant]
     Dosage: UNK
     Route: 061

REACTIONS (4)
  - Application site burn [Recovering/Resolving]
  - Application site vesicles [Recovered/Resolved]
  - Application site pain [Recovering/Resolving]
  - Drug ineffective [Unknown]

NARRATIVE: CASE EVENT DATE: 20210210
